FAERS Safety Report 4616433-4 (Version None)
Quarter: 2005Q1

REPORT INFORMATION
  Report Type: 
  Country: None (occurrence: None)
  Receive Date: 20050318
  Receipt Date: 20050302
  Transmission Date: 20050727
  Serious: Yes (Death, Hospitalization)
  Sender: FDA-Public Use
  Company Number: L04-USA-07403-28

PATIENT
  Age: 58 Year
  Sex: Female

DRUGS (6)
  1. CELEXA [Suspect]
  2. RISPERDAL [Suspect]
  3. METHYLPHENIDATE [Suspect]
  4. ROFECOXIB [Suspect]
  5. HYDROCHLOROTHIAZIDE [Suspect]
  6. ASPIRIN [Suspect]

REACTIONS (10)
  - ABNORMAL BEHAVIOUR [None]
  - CARDIAC ARREST [None]
  - COMPLETED SUICIDE [None]
  - CONFUSIONAL STATE [None]
  - CONVULSION [None]
  - HYPOTENSION [None]
  - INTENTIONAL MISUSE [None]
  - RESPIRATORY ARREST [None]
  - STUPOR [None]
  - VENTRICULAR TACHYCARDIA [None]
